FAERS Safety Report 18646622 (Version 1)
Quarter: 2020Q4

REPORT INFORMATION
  Report Type: Spontaneous
  Country: EG (occurrence: EG)
  Receive Date: 20201222
  Receipt Date: 20201222
  Transmission Date: 20210114
  Serious: Yes (Other)
  Sender: FDA-Public Use
  Company Number: EG-ADVANZ PHARMA-202012010952

PATIENT

DRUGS (6)
  1. FOLIC ACID. [Suspect]
     Active Substance: FOLIC ACID
     Indication: AUTOIMMUNE DISORDER
     Dosage: 1 DOSAGE FORM, QD
     Route: 065
     Dates: start: 202003
  2. EZACARD [Suspect]
     Active Substance: ASPIRIN
     Indication: AUTOIMMUNE DISORDER
     Dosage: 1 DOSAGE FORM, QD
     Route: 065
     Dates: start: 202003
  3. SOLUPRED [PREDNISOLONE] [Suspect]
     Active Substance: PREDNISOLONE
     Indication: AUTOIMMUNE DISORDER
     Dosage: 20 MG, QD
     Route: 065
     Dates: start: 202003, end: 202007
  4. CAL-HEPARINE [Suspect]
     Active Substance: HEPARIN CALCIUM
     Indication: PRODUCT USED FOR UNKNOWN INDICATION
     Dosage: 1 DOSAGE FORM, BID, Q12H (EVERY 12 HOURS )
     Route: 065
     Dates: start: 202010
  5. SOLUPRED [PREDNISOLONE] [Suspect]
     Active Substance: PREDNISOLONE
     Dosage: 5 MG, QD
     Route: 065
     Dates: start: 202007
  6. HYDROXYCHLOROQUINE SULFATE (AUTHORIZED GENERIC),PLAQUENIL [Suspect]
     Active Substance: HYDROXYCHLOROQUINE SULFATE
     Indication: RHEUMATOID ARTHRITIS
     Dosage: 1 DOSAGE FORM, QD
     Route: 065
     Dates: start: 202003

REACTIONS (6)
  - Angina pectoris [Recovered/Resolved]
  - Dysphonia [Recovered/Resolved]
  - Balance disorder [Recovered/Resolved]
  - Dizziness [Recovered/Resolved]
  - Disease recurrence [Recovered/Resolved]
  - Exposure during pregnancy [Unknown]

NARRATIVE: CASE EVENT DATE: 202004
